FAERS Safety Report 4834481-6 (Version None)
Quarter: 2005Q4

REPORT INFORMATION
  Report Type: 
  Country: None (occurrence: None)
  Receive Date: 20051122
  Receipt Date: 20041220
  Transmission Date: 20060501
  Serious: No
  Sender: FDA-Public Use
  Company Number: US-BRISTOL-MYERS SQUIBB COMPANY-12801767

PATIENT
  Age: 75 Year
  Sex: Male
  Weight: 91 kg

DRUGS (8)
  1. PRAVACHOL [Suspect]
     Dates: start: 19910101, end: 20030101
  2. PLAVIX [Concomitant]
     Indication: MYOCARDIAL INFARCTION
     Route: 048
     Dates: start: 20030901, end: 20041201
  3. HUMALOG [Concomitant]
     Dosage: 75/25 UNITS TWICE DAILY
     Dates: start: 20010101
  4. PRECOSE [Concomitant]
  5. SYNTHROID [Concomitant]
  6. AMARYL [Concomitant]
  7. VITAMINS [Concomitant]
  8. ECOTRIN [Concomitant]

REACTIONS (1)
  - DYSURIA [None]
